FAERS Safety Report 20891473 (Version 4)
Quarter: 2022Q3

REPORT INFORMATION
  Report Type: Report from Study
  Country: CA (occurrence: CA)
  Receive Date: 20220530
  Receipt Date: 20220729
  Transmission Date: 20221027
  Serious: Yes (Hospitalization, Other)
  Sender: FDA-Public Use
  Company Number: CA-BRISTOL-MYERS SQUIBB COMPANY-CAN-20220103478

PATIENT
  Age: 84 Year
  Sex: Male

DRUGS (2)
  1. REBLOZYL [Suspect]
     Active Substance: LUSPATERCEPT-AAMT
     Indication: Myelodysplastic syndrome
     Dosage: 3 WEEKS
     Route: 058
     Dates: start: 20210928
  2. REBLOZYL [Suspect]
     Active Substance: LUSPATERCEPT-AAMT
     Dosage: 3 WEEKS
     Route: 058
     Dates: start: 20210928

REACTIONS (10)
  - Oedema peripheral [Not Recovered/Not Resolved]
  - Hospitalisation [Unknown]
  - Haemoglobin decreased [Not Recovered/Not Resolved]
  - Product dose omission issue [Unknown]
  - Blood pressure systolic increased [Unknown]
  - Off label use [Unknown]
  - Medication error [Unknown]
  - Poor venous access [Not Recovered/Not Resolved]
  - Hypokinesia [Not Recovered/Not Resolved]
  - Oedema [Not Recovered/Not Resolved]

NARRATIVE: CASE EVENT DATE: 20220101
